FAERS Safety Report 15527894 (Version 2)
Quarter: 2018Q4

REPORT INFORMATION
  Report Type: Report from Study
  Country: None (occurrence: US)
  Receive Date: 20181020
  Receipt Date: 20181116
  Transmission Date: 20190205
  Serious: Yes (Other)
  Sender: FDA-Public Use
  Company Number: US-ABBVIE-18K-163-2525419-00

PATIENT
  Sex: Female
  Weight: 72.64 kg

DRUGS (1)
  1. HUMIRA [Suspect]
     Active Substance: ADALIMUMAB
     Indication: RHEUMATOID ARTHRITIS
     Route: 058
     Dates: start: 2017

REACTIONS (6)
  - Immunosuppression [Unknown]
  - Accident [Unknown]
  - Pain [Recovering/Resolving]
  - Amnesia [Unknown]
  - Swelling [Recovering/Resolving]
  - Traumatic coma [Unknown]

NARRATIVE: CASE EVENT DATE: 2017
